FAERS Safety Report 13075759 (Version 1)
Quarter: 2016Q4

REPORT INFORMATION
  Report Type: Spontaneous
  Country: US (occurrence: US)
  Receive Date: 20161230
  Receipt Date: 20161230
  Transmission Date: 20170207
  Serious: Yes (Life-Threatening, Hospitalization, Other)
  Sender: FDA-Public Use
  Company Number: US-WEST-WARD PHARMACEUTICALS CORP.-US-H14001-16-03070

PATIENT
  Age: 56 Year
  Sex: Female

DRUGS (2)
  1. TRIMETHOPRIM/SULFAMETHOXAZOLE [Interacting]
     Active Substance: SULFAMETHOXAZOLE\TRIMETHOPRIM
     Indication: CELLULITIS
     Route: 065
  2. IRBESARTAN. [Suspect]
     Active Substance: IRBESARTAN
     Indication: PRODUCT USED FOR UNKNOWN INDICATION
     Route: 065

REACTIONS (6)
  - Atrioventricular block first degree [Unknown]
  - Sinus bradycardia [Unknown]
  - Hyperkalaemia [Recovered/Resolved]
  - Hypotension [Unknown]
  - Drug interaction [Unknown]
  - Renal impairment [Unknown]
